FAERS Safety Report 5191946-8 (Version None)
Quarter: 2006Q4

REPORT INFORMATION
  Report Type: 
  Country: None (occurrence: None)
  Receive Date: 20061227
  Receipt Date: 20061221
  Transmission Date: 20070319
  Serious: Yes (Death)
  Sender: FDA-Public Use
  Company Number: US-BRISTOL-MYERS SQUIBB COMPANY-13620315

PATIENT
  Age: 64 Year
  Sex: Male
  Weight: 58 kg

DRUGS (3)
  1. MEGACE [Suspect]
     Route: 048
  2. LEXAPRO [Concomitant]
     Dates: end: 20060726
  3. TARCEVA [Concomitant]
     Dates: end: 20060726

REACTIONS (1)
  - DEATH [None]
